FAERS Safety Report 15609302 (Version 2)
Quarter: 2018Q4

REPORT INFORMATION
  Report Type: Report from Study
  Country: CA (occurrence: CA)
  Receive Date: 20181112
  Receipt Date: 20181207
  Transmission Date: 20190205
  Serious: Yes (Hospitalization)
  Sender: FDA-Public Use
  Company Number: CA-GILEAD-2018-0373221

PATIENT
  Sex: Male
  Weight: 79.9 kg

DRUGS (25)
  1. PANTOPRAZOLE [Concomitant]
     Active Substance: PANTOPRAZOLE
  2. TOCILIZUMAB. [Concomitant]
     Active Substance: TOCILIZUMAB
  3. RAMIPRIL. [Concomitant]
     Active Substance: RAMIPRIL
  4. SEPTRA DS [Concomitant]
     Active Substance: SULFAMETHOXAZOLE\TRIMETHOPRIM
  5. VITAMIN D [Concomitant]
     Active Substance: CHOLECALCIFEROL
  6. AXICABTAGENE CILOLEUCEL [Suspect]
     Active Substance: AXICABTAGENE CILOLEUCEL
     Indication: NON-HODGKIN^S LYMPHOMA REFRACTORY
     Dosage: 1.7 X 10^8, 68 ML
     Route: 042
     Dates: start: 20181015, end: 20181015
  7. FLUDARABINE [Suspect]
     Active Substance: FLUDARABINE PHOSPHATE
     Indication: BONE MARROW CONDITIONING REGIMEN
     Dosage: 59.1 MG, QD
     Route: 042
     Dates: start: 20181010, end: 20181012
  8. ACETAMINOPHEN. [Concomitant]
     Active Substance: ACETAMINOPHEN
  9. VANCOMYCIN [Concomitant]
     Active Substance: VANCOMYCIN
  10. ACYCLOVIR [ACICLOVIR] [Concomitant]
     Active Substance: ACYCLOVIR
  11. FLUCONAZOLE. [Concomitant]
     Active Substance: FLUCONAZOLE
  12. MAGNESIUM SULFATE. [Concomitant]
     Active Substance: MAGNESIUM SULFATE
  13. PHOSPHATE NOVARTIS [Concomitant]
  14. PIPERACILLIN AND TAZOBACTAM [Concomitant]
     Active Substance: PIPERACILLIN SODIUM\TAZOBACTAM SODIUM
  15. POTASSIUM PHOSPHATE DIBASIC [Concomitant]
     Active Substance: POTASSIUM PHOSPHATE, DIBASIC
  16. RABEPRAZOLE [Concomitant]
     Active Substance: RABEPRAZOLE
  17. FLOMAX [Concomitant]
     Active Substance: TAMSULOSIN HYDROCHLORIDE
  18. CYCLOPHOSPHAMIDE. [Suspect]
     Active Substance: CYCLOPHOSPHAMIDE
     Indication: BONE MARROW CONDITIONING REGIMEN
     Dosage: 985 MG, QD
     Route: 042
     Dates: start: 20181010, end: 20181012
  19. CIPROFLOXACIN. [Concomitant]
     Active Substance: CIPROFLOXACIN
  20. ALLOPURINOL. [Concomitant]
     Active Substance: ALLOPURINOL
  21. CALCIUM CHLORIDE. [Concomitant]
     Active Substance: CALCIUM CHLORIDE
  22. DEXAMETHASONE. [Concomitant]
     Active Substance: DEXAMETHASONE
  23. LEVETIRACETAM. [Concomitant]
     Active Substance: LEVETIRACETAM
  24. NORMAL SALINE [Concomitant]
     Active Substance: SODIUM CHLORIDE
  25. ONDANSETRON [Concomitant]
     Active Substance: ONDANSETRON

REACTIONS (2)
  - Sinus bradycardia [Recovered/Resolved]
  - Neutrophil count decreased [Recovered/Resolved]

NARRATIVE: CASE EVENT DATE: 20181015
